FAERS Safety Report 8576547-3 (Version None)
Quarter: 2012Q3

REPORT INFORMATION
  Report Type: 
  Country: None (occurrence: None)
  Receive Date: 20120807
  Receipt Date: 20120731
  Transmission Date: 20120928
  Serious: Yes (Death, Hospitalization)
  Sender: FDA-Public Use
  Company Number: US-JNJFOC-20100902861

PATIENT
  Sex: Female
  Weight: 64.41 kg

DRUGS (6)
  1. ELAVIL [Concomitant]
  2. DOXYLAMINE SUCCINATE [Concomitant]
     Indication: INSOMNIA
  3. TYLENOL [Suspect]
     Route: 048
  4. TYLENOL PM [Suspect]
     Indication: INSOMNIA
     Route: 048
  5. EFFEXOR [Concomitant]
  6. TYLENOL [Suspect]
     Indication: PRODUCT USED FOR UNKNOWN INDICATION
     Route: 048
     Dates: start: 20081001, end: 20081003

REACTIONS (3)
  - TOXICITY TO VARIOUS AGENTS [None]
  - RENAL FAILURE ACUTE [None]
  - ACUTE HEPATIC FAILURE [None]
